FAERS Safety Report 17350858 (Version 1)
Quarter: 2020Q1

REPORT INFORMATION
  Report Type: Report from Study
  Country: IT (occurrence: IT)
  Receive Date: 20200130
  Receipt Date: 20200130
  Transmission Date: 20200409
  Serious: Yes (Other)
  Sender: FDA-Public Use
  Company Number: IT-TEVA-2020-IT-1177082

PATIENT
  Age: 20 Year
  Sex: Female

DRUGS (3)
  1. CLARITHROMYCIN. [Suspect]
     Active Substance: CLARITHROMYCIN
     Indication: HELICOBACTER TEST POSITIVE
     Dosage: 1 GRAM
     Route: 048
     Dates: start: 20200111, end: 20200119
  2. AMOXICILLIN SODIUM [Suspect]
     Active Substance: AMOXICILLIN SODIUM
     Indication: HELICOBACTER TEST POSITIVE
     Dosage: 3 GRAM
     Route: 048
     Dates: start: 20200111, end: 20200119
  3. PANTOPRAZOLE [Suspect]
     Active Substance: PANTOPRAZOLE
     Indication: HELICOBACTER TEST POSITIVE
     Dosage: 40 MG
     Route: 048
     Dates: start: 20200111, end: 20200119

REACTIONS (1)
  - Tongue oedema [Unknown]

NARRATIVE: CASE EVENT DATE: 20200116
